FAERS Safety Report 13956826 (Version 1)
Quarter: 2017Q3

REPORT INFORMATION
  Report Type: Spontaneous
  Country: JP (occurrence: JP)
  Receive Date: 20170911
  Receipt Date: 20170911
  Transmission Date: 20171128
  Serious: Yes (Death)
  Sender: FDA-Public Use
  Company Number: JP-PFIZER INC-2017381332

PATIENT

DRUGS (9)
  1. LEVOMEPROMAZINE [Suspect]
     Active Substance: LEVOMEPROMAZINE
  2. FLUNITRAZEPAM [Suspect]
     Active Substance: FLUNITRAZEPAM
  3. ZOPICLONE [Suspect]
     Active Substance: ZOPICLONE
  4. PAVULON GOLD A [Suspect]
     Active Substance: ACETAMINOPHEN\CAFFEINE\CHLORPHENIRAMINE\DIHYDROCODEINE\GUAIFENESIN\METHYLEPHEDRINE, (+/-)-\RIBOFLAVIN
  5. SKAINAR AL [Suspect]
     Active Substance: AZELASTINE HYDROCHLORIDE
  6. PRANOPROFEN TOWA [Suspect]
     Active Substance: PRANOPROFEN
  7. PL [Suspect]
     Active Substance: ACETAMINOPHEN\CAFFEINE\PROMETHAZINE\SALICYLAMIDE
  8. BROMPERIDOL [Suspect]
     Active Substance: BROMPERIDOL
  9. HALCION [Suspect]
     Active Substance: TRIAZOLAM
     Route: 048

REACTIONS (2)
  - Drowning [Fatal]
  - Drug screen positive [Fatal]
